FAERS Safety Report 7715410-4 (Version None)
Quarter: 2011Q3

REPORT INFORMATION
  Report Type: 
  Country: None (occurrence: None)
  Receive Date: 20110829
  Receipt Date: 20110816
  Transmission Date: 20111222
  Serious: Yes (Hospitalization, Other)
  Sender: FDA-Public Use
  Company Number: FR-UCBSA-039366

PATIENT
  Sex: Female

DRUGS (4)
  1. KEPPRA [Suspect]
     Route: 048
     Dates: end: 20110801
  2. KEPPRA [Suspect]
     Route: 048
     Dates: start: 20110801, end: 20110801
  3. TAXOL [Concomitant]
     Indication: METASTASIS
  4. KEPPRA [Suspect]
     Indication: CONVULSION
     Route: 048

REACTIONS (10)
  - IMPAIRED REASONING [None]
  - APLASIA [None]
  - PYREXIA [None]
  - RESPIRATORY DISORDER [None]
  - DYSPHAGIA [None]
  - ACCIDENTAL OVERDOSE [None]
  - COUGH [None]
  - APHONIA [None]
  - SOMNOLENCE [None]
  - DECREASED APPETITE [None]
